FAERS Safety Report 9215041 (Version 2)
Quarter: 2013Q2

REPORT INFORMATION
  Report Type: Spontaneous
  Country: US (occurrence: US)
  Receive Date: 20130405
  Receipt Date: 20130502
  Transmission Date: 20140414
  Serious: Yes (Other)
  Sender: FDA-Public Use
  Company Number: US-JNJFOC-20130316427

PATIENT
  Age: 20 Year
  Sex: Male
  Weight: 72.58 kg

DRUGS (2)
  1. INVEGA [Suspect]
     Indication: SCHIZOAFFECTIVE DISORDER
     Route: 048
     Dates: start: 20130310, end: 20130321
  2. INVEGA [Suspect]
     Indication: SCHIZOAFFECTIVE DISORDER
     Route: 048
     Dates: start: 20130322, end: 20130323

REACTIONS (6)
  - Blood glucose increased [Unknown]
  - Heart rate increased [Unknown]
  - Gait disturbance [Unknown]
  - Dyskinesia [Unknown]
  - Drug dose omission [Not Recovered/Not Resolved]
  - Adverse drug reaction [Recovering/Resolving]
